FAERS Safety Report 23258268 (Version 1)
Quarter: 2023Q4

REPORT INFORMATION
  Report Type: Other
  Country: US (occurrence: None)
  Receive Date: 20231204
  Receipt Date: 20231204
  Transmission Date: 20240110
  Serious: Yes (Death)
  Sender: FDA-Public Use
  Company Number: US-ROCHE-3466349

PATIENT
  Age: 55 Year
  Sex: Female

DRUGS (4)
  1. PERJETA [Suspect]
     Active Substance: PERTUZUMAB
     Indication: Cervix carcinoma
     Dosage: INFUSE 840MG INTRAVENOUSLY EVERY 21 DAY(S)
     Route: 042
  2. HERCEPTIN [Suspect]
     Active Substance: TRASTUZUMAB
     Indication: Cervix carcinoma
     Dosage: INFUSE 450 MG INTRAVENOUSLY EVERY 21 DAY(S)
     Route: 041
  3. HERCEPTIN [Suspect]
     Active Substance: TRASTUZUMAB
     Dosage: INFUSE 450MG (8MG/KG) INTRAVENOUSLY EVERY 21 DAY(S)
     Route: 041
  4. HERCEPTIN [Suspect]
     Active Substance: TRASTUZUMAB
     Dosage: INFUSE 450MG (8MG/KG) INTRAVENOUSLY EVERY 21 DAY(S)
     Route: 041

REACTIONS (2)
  - Death [Fatal]
  - Off label use [Unknown]

NARRATIVE: CASE EVENT DATE: 20231115
